FAERS Safety Report 9887858 (Version 1)
Quarter: 2013Q4

REPORT INFORMATION
  Report Type: Spontaneous
  Country: US (occurrence: None)
  Receive Date: 20131223
  Receipt Date: 20131223
  Transmission Date: 20140711
  Serious: No
  Sender: FDA-Public Use
  Company Number: 217281LEO

PATIENT
  Age: 87 Year
  Sex: Male

DRUGS (1)
  1. PICATO (0.015%, GEL) [Suspect]
     Indication: RASH
     Dosage: 1 IN 1 DAY
     Route: 061
     Dates: start: 20120407, end: 20120409

REACTIONS (6)
  - Application site vesicles [None]
  - Application site pain [None]
  - Application site pruritus [None]
  - Application site erythema [None]
  - Application site exfoliation [None]
  - Off label use [None]
